FAERS Safety Report 9881836 (Version 1)
Quarter: 2014Q1

REPORT INFORMATION
  Report Type: Spontaneous
  Country: DE (occurrence: DE)
  Receive Date: 20140207
  Receipt Date: 20140207
  Transmission Date: 20141002
  Serious: Yes (Hospitalization)
  Sender: FDA-Public Use
  Company Number: DE-PFIZER INC-2014034551

PATIENT
  Age: 42 Year
  Sex: Male
  Weight: 55 kg

DRUGS (2)
  1. PANTOZOL [Suspect]
     Indication: DYSPEPSIA
     Dosage: 560 MG (TOTAL DOSE)
     Route: 048
     Dates: start: 20140131, end: 20140131
  2. ALCOHOL [Suspect]
     Dosage: UNK
     Route: 065

REACTIONS (4)
  - Overdose [Unknown]
  - Alcohol poisoning [Unknown]
  - Dizziness [Unknown]
  - Headache [Unknown]
